FAERS Safety Report 8799306 (Version 1)
Quarter: 2012Q4

REPORT INFORMATION
  Report Type: 
  Country: FR (occurrence: FR)
  Receive Date: 20120920
  Receipt Date: 20120920
  Transmission Date: 20130627
  Serious: Yes (Hospitalization)
  Sender: FDA-Public Use
  Company Number: FR-GILEAD-2012-0061451

PATIENT
  Age: 70 Year
  Sex: Female

DRUGS (1)
  1. TRUVADA [Suspect]
     Indication: PRODUCT USED FOR UNKNOWN INDICATION
     Dosage: 445 mg, QD
     Route: 048
     Dates: start: 20080111, end: 20080723

REACTIONS (2)
  - Femoral neck fracture [Recovered/Resolved with Sequelae]
  - Osteopenia [Recovered/Resolved]
